FAERS Safety Report 10475229 (Version 1)
Quarter: 2014Q3

REPORT INFORMATION
  Report Type: Report from Study
  Country: US (occurrence: US)
  Receive Date: 20140925
  Receipt Date: 20140925
  Transmission Date: 20150326
  Serious: Yes (Hospitalization)
  Sender: FDA-Public Use
  Company Number: US-ROCHE-1417180

PATIENT
  Age: 41 Year
  Sex: Female
  Weight: 116.22 kg

DRUGS (13)
  1. DESYREL [Concomitant]
     Active Substance: TRAZODONE HYDROCHLORIDE
     Route: 048
  2. COMPAZINE [Concomitant]
     Active Substance: PROCHLORPERAZINE MALEATE
     Route: 048
  3. WELLBUTRIN [Concomitant]
     Active Substance: BUPROPION HYDROCHLORIDE
     Route: 048
  4. XANAX [Concomitant]
     Active Substance: ALPRAZOLAM
     Route: 048
  5. PHENERGAN [Concomitant]
     Active Substance: PROMETHAZINE HYDROCHLORIDE
     Route: 048
  6. NAPROXEN. [Suspect]
     Active Substance: NAPROXEN
     Indication: PRODUCT USED FOR UNKNOWN INDICATION
     Route: 048
  7. NUTROPIN AQ [Suspect]
     Active Substance: SOMATROPIN
     Route: 058
  8. EFFEXOR [Concomitant]
     Active Substance: VENLAFAXINE HYDROCHLORIDE
     Route: 048
  9. TRAMADOL [Concomitant]
     Active Substance: TRAMADOL
     Route: 048
  10. LAMICTAL [Concomitant]
     Active Substance: LAMOTRIGINE
     Route: 048
  11. ROBAXIN [Concomitant]
     Active Substance: METHOCARBAMOL
     Route: 048
  12. NUTROPIN AQ [Suspect]
     Active Substance: SOMATROPIN
     Indication: GROWTH HORMONE DEFICIENCY
     Route: 058
  13. SYNTHROID [Concomitant]
     Active Substance: LEVOTHYROXINE SODIUM
     Route: 048

REACTIONS (26)
  - Skin hypertrophy [Unknown]
  - Wheezing [Unknown]
  - Libido decreased [Unknown]
  - Rhinorrhoea [Unknown]
  - Acrochordon [Unknown]
  - Skin striae [Unknown]
  - Constipation [Not Recovered/Not Resolved]
  - Malaise [Unknown]
  - Dizziness [Unknown]
  - Insomnia [Unknown]
  - Vomiting [Unknown]
  - Increased tendency to bruise [Unknown]
  - Alopecia [Unknown]
  - Asthenia [Unknown]
  - Headache [Unknown]
  - Disturbance in attention [Unknown]
  - Upper respiratory tract infection [Unknown]
  - Dry skin [Unknown]
  - Nausea [Unknown]
  - Arthralgia [Unknown]
  - Memory impairment [Unknown]
  - Dyspepsia [Unknown]
  - Hypertension [Unknown]
  - Palpitations [Unknown]
  - Weight decreased [Unknown]
  - Hair growth abnormal [Unknown]

NARRATIVE: CASE EVENT DATE: 201110
